FAERS Safety Report 6570981-9 (Version None)
Quarter: 2010Q1

REPORT INFORMATION
  Report Type: 
  Country: None (occurrence: None)
  Receive Date: 20100204
  Receipt Date: 20100125
  Transmission Date: 20100710
  Serious: Yes (Disabling)
  Sender: FDA-Public Use
  Company Number: PHHY2009US55009

PATIENT
  Sex: Female
  Weight: 157 kg

DRUGS (8)
  1. RECLAST [Suspect]
     Indication: OSTEOPOROSIS
     Dosage: 5 MG/100 ML
     Route: 042
     Dates: start: 20090108
  2. SINTROM [Concomitant]
  3. VITAMIN C [Concomitant]
  4. VITAMIN B-12 [Concomitant]
  5. VITAMIN D W/VITAMIN E [Concomitant]
  6. AMBIEN [Concomitant]
     Indication: INSOMNIA
     Dosage: 5 MG, QD PRN
     Dates: start: 20071106
  7. ZOLOFT [Concomitant]
     Indication: ANXIETY
     Dosage: 25 MG, QD
     Dates: start: 20090716
  8. PREMPRO [Concomitant]
     Indication: MENOPAUSAL SYMPTOMS
     Dosage: 1 DF, QD
     Route: 048
     Dates: start: 20090716

REACTIONS (3)
  - PAIN [None]
  - PARAESTHESIA [None]
  - SYNCOPE [None]
